FAERS Safety Report 5901178-0 (Version None)
Quarter: 2008Q3

REPORT INFORMATION
  Report Type: 
  Country: None (occurrence: None)
  Receive Date: 20080929
  Receipt Date: 20080916
  Transmission Date: 20090109
  Serious: Yes (Death)
  Sender: FDA-Public Use
  Company Number: US-BAYER-200823910GPV

PATIENT
  Age: 63 Year
  Sex: Male
  Weight: 72 kg

DRUGS (15)
  1. CAMPATH [Suspect]
     Indication: CHRONIC LYMPHOCYTIC LEUKAEMIA
     Route: 042
     Dates: start: 20080408
  2. CAMPATH [Suspect]
     Route: 042
     Dates: start: 20080415, end: 20080710
  3. FLUDARA [Suspect]
     Indication: CHRONIC LYMPHOCYTIC LEUKAEMIA
     Route: 042
     Dates: start: 20080415, end: 20080710
  4. NITROGLYCERIN [Concomitant]
     Dates: start: 20080727, end: 20080729
  5. RIBOXIN [Concomitant]
     Route: 065
     Dates: start: 20080727, end: 20080729
  6. ASPIRIN [Concomitant]
     Route: 065
     Dates: start: 20080727, end: 20080729
  7. PANANGIN [Concomitant]
     Route: 065
     Dates: start: 20080727, end: 20080729
  8. DEXTROSE 5% [Concomitant]
     Route: 042
  9. PAPAVERIN [Concomitant]
     Route: 065
     Dates: start: 20080727, end: 20080728
  10. PLATIPHILIN [Concomitant]
     Route: 065
     Dates: start: 20080727, end: 20080728
  11. DIPYRONE INJ [Concomitant]
     Route: 065
     Dates: start: 20080727, end: 20080728
  12. NITROSORBIT [Concomitant]
     Route: 065
     Dates: start: 20080727, end: 20080728
  13. VITAMIN B1 TAB [Concomitant]
     Route: 065
     Dates: start: 20080727, end: 20080728
  14. RED BLOOD CELLS [Concomitant]
     Route: 042
     Dates: start: 20080728, end: 20080728
  15. FRESH FROZEN PLASMA [Concomitant]
     Route: 042
     Dates: start: 20080728, end: 20080728

REACTIONS (1)
  - CORONARY ARTERY INSUFFICIENCY [None]
